FAERS Safety Report 7055522-4 (Version None)
Quarter: 2010Q4

REPORT INFORMATION
  Report Type: 
  Country: None (occurrence: None)
  Receive Date: 20101019
  Receipt Date: 20101019
  Transmission Date: 20110411
  Serious: No
  Sender: FDA-Public Use
  Company Number: None

PATIENT
  Age: 49 Year
  Sex: Male
  Weight: 82.5547 kg

DRUGS (1)
  1. AVALIDE [Suspect]

REACTIONS (3)
  - BLOOD PRESSURE ABNORMAL [None]
  - INCORRECT PRODUCT STORAGE [None]
  - PRODUCT PACKAGING ISSUE [None]
